FAERS Safety Report 11122508 (Version 1)
Quarter: 2015Q2

REPORT INFORMATION
  Report Type: Spontaneous
  Country: US (occurrence: US)
  Receive Date: 20150519
  Receipt Date: 20150519
  Transmission Date: 20150821
  Serious: No
  Sender: FDA-Public Use
  Company Number: US-BAUSCH-SYM-2014-20149

PATIENT
  Age: 67 Year
  Sex: Female
  Weight: 49.03 kg

DRUGS (1)
  1. MYSOLINE [Suspect]
     Active Substance: PRIMIDONE
     Indication: ESSENTIAL TREMOR
     Dosage: 25 MG DAILY AT NIGHT TIME
     Dates: start: 20140414

REACTIONS (3)
  - Gait disturbance [Not Recovered/Not Resolved]
  - Vertigo [Recovered/Resolved]
  - Dizziness [Not Recovered/Not Resolved]

NARRATIVE: CASE EVENT DATE: 201404
